FAERS Safety Report 6356677-7 (Version None)
Quarter: 2009Q3

REPORT INFORMATION
  Report Type: 
  Country: None (occurrence: None)
  Receive Date: 20090910
  Receipt Date: 20090910
  Transmission Date: 20100115
  Serious: No
  Sender: FDA-Public Use
  Company Number: None

PATIENT
  Age: 44 Year
  Sex: Male
  Weight: 92.9874 kg

DRUGS (1)
  1. ZICAM-NO-DRIP LIQUID NASAL GEL INTENSE ZICAM LLC [Suspect]
     Indication: NASAL CONGESTION
     Dosage: ONE 12 HOURS NASAL
     Route: 045

REACTIONS (1)
  - ANOSMIA [None]
